FAERS Safety Report 4725800-X (Version None)
Quarter: 2005Q3

REPORT INFORMATION
  Report Type: 
  Country: None (occurrence: None)
  Receive Date: 20050722
  Receipt Date: 20050722
  Transmission Date: 20060218
  Serious: Yes (Hospitalization)
  Sender: FDA-Public Use
  Company Number: None

PATIENT
  Age: 97 Year
  Sex: Female

DRUGS (2)
  1. WARFARIN SODIUM [Suspect]
     Dosage: 2MG  QOD ORAL
     Route: 048
  2. WARFARIN SODIUM [Suspect]
     Dosage: 1MG QOD ORAL
     Route: 048

REACTIONS (2)
  - BLOOD PRESSURE SYSTOLIC INCREASED [None]
  - CEREBRAL HAEMORRHAGE [None]
